FAERS Safety Report 24459451 (Version 1)
Quarter: 2024Q4

REPORT INFORMATION
  Report Type: Report from Study
  Country: US (occurrence: US)
  Receive Date: 20241018
  Receipt Date: 20241018
  Transmission Date: 20250115
  Serious: No
  Sender: ROCHE
  Company Number: US-ROCHE-3550027

PATIENT
  Age: 57 Year
  Sex: Female

DRUGS (15)
  1. RITUXAN [Suspect]
     Active Substance: RITUXIMAB
     Indication: Systemic lupus erythematosus
     Dosage: 1000MG IV MIXED WITH 500ML NS DAY 1 AND DAY 15 EVERY 24 WEEKS
     Route: 041
  2. RITUXAN [Suspect]
     Active Substance: RITUXIMAB
     Indication: Rheumatoid arthritis
  3. METHOTREXATE [Concomitant]
     Active Substance: METHOTREXATE
     Route: 065
  4. PLAQUENIL [Concomitant]
     Active Substance: HYDROXYCHLOROQUINE SULFATE
  5. SODIUM CHLORIDE [Concomitant]
     Active Substance: SODIUM CHLORIDE
  6. HYDROXYCHLOROQUINE [Concomitant]
     Active Substance: HYDROXYCHLOROQUINE
  7. METHOCARBAMOL [Concomitant]
     Active Substance: METHOCARBAMOL
  8. CYANOCOBALAMIN [Concomitant]
     Active Substance: CYANOCOBALAMIN
  9. ESTRADIOL [Concomitant]
     Active Substance: ESTRADIOL
  10. FUROSEMIDE [Concomitant]
     Active Substance: FUROSEMIDE
  11. TOPIRAMATE [Concomitant]
     Active Substance: TOPIRAMATE
  12. TRIAMTERENE [Concomitant]
     Active Substance: TRIAMTERENE
  13. ESCITALOPRAM [Concomitant]
     Active Substance: ESCITALOPRAM OXALATE
  14. DICLOFENAC SODIUM [Concomitant]
     Active Substance: DICLOFENAC SODIUM
  15. DIAZEPAM [Concomitant]
     Active Substance: DIAZEPAM
     Route: 065

REACTIONS (8)
  - Osteoarthritis [Unknown]
  - Vitamin D abnormal [Unknown]
  - Hyperparathyroidism [Unknown]
  - Interstitial lung disease [Unknown]
  - Spinal osteoarthritis [Unknown]
  - Anaemia vitamin B12 deficiency [Unknown]
  - Connective tissue disorder [Unknown]
  - Lumbar radiculopathy [Unknown]
